FAERS Safety Report 21215374 (Version 1)
Quarter: 2022Q3

REPORT INFORMATION
  Report Type: Spontaneous
  Country: US (occurrence: US)
  Receive Date: 20220816
  Receipt Date: 20220816
  Transmission Date: 20221026
  Serious: Yes (Hospitalization)
  Sender: FDA-Public Use
  Company Number: US-SA-SAC20220809002437

PATIENT
  Age: 54 Year
  Sex: Female
  Weight: 59.864 kg

DRUGS (43)
  1. FABRAZYME [Suspect]
     Active Substance: AGALSIDASE BETA
     Indication: Fabry^s disease
     Dosage: 65 MG, QOW
     Route: 042
     Dates: start: 20070323
  2. FABRAZYME [Suspect]
     Active Substance: AGALSIDASE BETA
     Indication: Renal transplant
  3. PANTOPRAZOLE [Concomitant]
     Active Substance: PANTOPRAZOLE
  4. LOSARTAN [Concomitant]
     Active Substance: LOSARTAN
  5. CEPHALEXIN COX [Concomitant]
     Indication: Urinary tract infection
  6. CYANOCOBALAMIN [Concomitant]
     Active Substance: CYANOCOBALAMIN
  7. WARFARIN [Concomitant]
     Active Substance: WARFARIN
  8. VITAMIN C [Concomitant]
     Active Substance: ASCORBIC ACID
  9. HEPARIN [Concomitant]
     Active Substance: HEPARIN SODIUM
  10. ISOSORBIDE MONONITRATE [Concomitant]
     Active Substance: ISOSORBIDE MONONITRATE
  11. SEVELAMER CARBONATE [Concomitant]
     Active Substance: SEVELAMER CARBONATE
  12. METOPROLOL SUCCINATE [Concomitant]
     Active Substance: METOPROLOL SUCCINATE
  13. LIDOCAINE [Concomitant]
     Active Substance: LIDOCAINE
  14. PRILOCAINE [Concomitant]
     Active Substance: PRILOCAINE
  15. SODIUM CHLORIDE [Concomitant]
     Active Substance: SODIUM CHLORIDE
  16. STERILE WATER [Concomitant]
     Active Substance: WATER
  17. EPINEPHRINE [Concomitant]
     Active Substance: EPINEPHRINE
  18. ACETAMINOPHEN [Concomitant]
     Active Substance: ACETAMINOPHEN
  19. CODEINE [Concomitant]
     Active Substance: CODEINE
  20. SHINGRIX [Concomitant]
     Active Substance: RECOMBINANT VARICELLA ZOSTER VIRUS (VZV) GLYCOPROTEIN E
  21. ZOFRAN ODT [Concomitant]
     Active Substance: ONDANSETRON HYDROCHLORIDE
  22. CAPSAICIN [Concomitant]
     Active Substance: CAPSAICIN
  23. DOCUSATE SODIUM [Concomitant]
     Active Substance: DOCUSATE SODIUM
  24. GABAPENTIN [Concomitant]
     Active Substance: GABAPENTIN
  25. BISACODYL [Concomitant]
     Active Substance: BISACODYL
  26. ASPIRIN [Concomitant]
     Active Substance: ASPIRIN
  27. VITAMIN D3 [Concomitant]
     Active Substance: CHOLECALCIFEROL
  28. NITROFURANTOIN [Concomitant]
     Active Substance: NITROFURANTOIN
     Indication: Urinary tract infection
  29. HYDROXYZINE [Concomitant]
     Active Substance: HYDROXYZINE HYDROCHLORIDE
  30. MIRALAX [Concomitant]
     Active Substance: POLYETHYLENE GLYCOL 3350
  31. PROCHLORPERAZINE [Concomitant]
     Active Substance: PROCHLORPERAZINE
  32. PROGESTERONE [Concomitant]
     Active Substance: PROGESTERONE
  33. MACROCID [Concomitant]
     Indication: Urinary tract infection
  34. AUGMENTIN XR [Concomitant]
     Active Substance: AMOXICILLIN\CLAVULANATE POTASSIUM
     Indication: Urinary tract infection
  35. PANTOPRAZOLE SODIUM [Concomitant]
     Active Substance: PANTOPRAZOLE SODIUM
  36. MACROBID [Concomitant]
     Active Substance: NITROFURANTOIN\NITROFURANTOIN MONOHYDRATE
  37. HYDROXYZINE HYDROCHLORIDE [Concomitant]
     Active Substance: HYDROXYZINE HYDROCHLORIDE
  38. LOSARTAN POTASSIUM [Concomitant]
     Active Substance: LOSARTAN POTASSIUM
  39. DULCOLAX (BISACODYL) [Concomitant]
     Active Substance: BISACODYL
  40. PNEUMOVAX 23 [Concomitant]
     Active Substance: PNEUMOCOCCAL VACCINE, POLYVALENT 23
  41. WARFARIN SODIUM [Concomitant]
     Active Substance: WARFARIN SODIUM
  42. COVID-19 VACCINE NOS [Concomitant]
     Active Substance: COVID-19 VACCINE NOS
  43. B COMPLEX WITH VITAMIN C [ASCORBIC ACID;VITAMIN B COMPLEX] [Concomitant]

REACTIONS (3)
  - Urinary tract infection [Unknown]
  - Vomiting [Unknown]
  - Product use in unapproved indication [Unknown]

NARRATIVE: CASE EVENT DATE: 20070323
